FAERS Safety Report 21610813 (Version 1)
Quarter: 2022Q4

REPORT INFORMATION
  Report Type: Report from Study
  Country: US (occurrence: US)
  Receive Date: 20221117
  Receipt Date: 20221117
  Transmission Date: 20230112
  Serious: Yes (Death, Other)
  Sender: FDA-Public Use
  Company Number: US-GILEAD-2022-0605278

PATIENT
  Age: 50 Year
  Sex: Female

DRUGS (1)
  1. SACITUZUMAB GOVITECAN [Suspect]
     Active Substance: SACITUZUMAB GOVITECAN
     Indication: Breast cancer metastatic
     Dosage: UNK
     Route: 065
     Dates: start: 20221005, end: 20221005

REACTIONS (1)
  - Death [Fatal]

NARRATIVE: CASE EVENT DATE: 20221021
